FAERS Safety Report 23166875 (Version 1)
Quarter: 2023Q4

REPORT INFORMATION
  Report Type: Spontaneous
  Country: IT (occurrence: IT)
  Receive Date: 20231109
  Receipt Date: 20231109
  Transmission Date: 20240110
  Serious: Yes (Other)
  Sender: FDA-Public Use
  Company Number: IT-SUN PHARMACEUTICAL INDUSTRIES LTD-2023RR-388320

PATIENT
  Age: 49 Year
  Sex: Female

DRUGS (10)
  1. IRINOTECAN [Suspect]
     Active Substance: IRINOTECAN
     Indication: Rectal adenocarcinoma
     Dosage: 280 MG, IV INFUSION
     Route: 065
  2. OXALIPLATIN [Suspect]
     Active Substance: OXALIPLATIN
     Indication: Rectal adenocarcinoma
     Dosage: UNK
     Route: 065
     Dates: start: 2018, end: 2020
  3. OXALIPLATIN [Suspect]
     Active Substance: OXALIPLATIN
     Dosage: 135 MILLIGRAM, OVER 2 H
     Route: 040
     Dates: start: 202106
  4. LEUCOVORIN CALCIUM [Suspect]
     Active Substance: LEUCOVORIN CALCIUM
     Indication: Rectal adenocarcinoma
     Dosage: UNK
     Route: 065
     Dates: start: 2018, end: 2020
  5. LEUCOVORIN CALCIUM [Suspect]
     Active Substance: LEUCOVORIN CALCIUM
     Dosage: 300 MILLIGRAM, OVER 2 H
     Route: 040
     Dates: start: 202106
  6. FLUOROURACIL [Suspect]
     Active Substance: FLUOROURACIL
     Indication: Rectal adenocarcinoma
     Dosage: UNK
     Route: 065
     Dates: start: 2018, end: 2020
  7. FLUOROURACIL [Suspect]
     Active Substance: FLUOROURACIL
     Dosage: 600 MILLIGRAM, 48 H INFUSION
     Route: 040
     Dates: start: 202106
  8. FLUOROURACIL [Suspect]
     Active Substance: FLUOROURACIL
     Dosage: 4000 MILLIGRAM, 48 H INFUSION
     Route: 040
     Dates: start: 202106
  9. FLUOROURACIL [Suspect]
     Active Substance: FLUOROURACIL
     Dosage: 500 MG IV BOLUS INJECTION
     Route: 065
  10. FLUOROURACIL [Suspect]
     Active Substance: FLUOROURACIL
     Dosage: 2,800 MG IV 48 H
     Route: 065

REACTIONS (2)
  - Disease progression [Unknown]
  - Thrombocytopenia [Unknown]
